FAERS Safety Report 6713597-3 (Version None)
Quarter: 2010Q2

REPORT INFORMATION
  Report Type: 
  Country: None (occurrence: None)
  Receive Date: 20100506
  Receipt Date: 20100427
  Transmission Date: 20101027
  Serious: Yes (Hospitalization, Other)
  Sender: FDA-Public Use
  Company Number: BR-SANOFI-AVENTIS-2010SA025060

PATIENT
  Age: 43 Year
  Sex: Female
  Weight: 75 kg

DRUGS (5)
  1. LANTUS [Suspect]
     Route: 058
     Dates: start: 20080101
  2. NPH INSULIN [Concomitant]
     Dosage: 4IU BEFORE BREAKFAST, 6 IU BEFORE LUNCH AND 6IU BEFORE DINNER
     Dates: start: 20000101
  3. ENALAPRIL MALEATE [Concomitant]
     Indication: RENAL DISORDER
     Dosage: 1 TABLET
     Route: 048
     Dates: start: 20070101
  4. ENALAPRIL MALEATE [Concomitant]
     Indication: BLOOD PRESSURE ABNORMAL
     Dosage: 1 TABLET
     Route: 048
     Dates: start: 20070101
  5. RIVOTRIL [Concomitant]
     Route: 048
     Dates: start: 19870101

REACTIONS (2)
  - BLOOD GLUCOSE FLUCTUATION [None]
  - KETOACIDOSIS [None]
